FAERS Safety Report 7360219-7 (Version None)
Quarter: 2011Q1

REPORT INFORMATION
  Report Type: 
  Country: None (occurrence: None)
  Receive Date: 20110307
  Receipt Date: 20110223
  Transmission Date: 20110831
  Serious: Yes (Other)
  Sender: FDA-Public Use
  Company Number: 2011AP000334

PATIENT
  Age: 72 Year
  Sex: Male

DRUGS (8)
  1. ATORVASTATIN CALCIUM [Concomitant]
  2. BARNIDIPINE (BARNIDIPINE) [Concomitant]
  3. METOPROLOL (METOPROLOL) [Concomitant]
  4. LOSARTAN POTASSIUM [Suspect]
     Indication: HYPERTENSION
     Dosage: 100 MG;QD; PO
     Route: 048
     Dates: start: 20101014
  5. CARBASALATE CALCIUM (CARBASALATE CALCIUM) [Concomitant]
  6. PERINDOPRIL (PERINDOPRIL) [Concomitant]
  7. TAMSULOSIN HCL [Concomitant]
  8. LOSARTAN POTASSIUM [Suspect]
     Indication: HYPERTENSION
     Dosage: 50  MG;QD; PO
     Route: 048
     Dates: start: 20101216

REACTIONS (1)
  - GASTROINTESTINAL HAEMORRHAGE [None]
